FAERS Safety Report 10516013 (Version 2)
Quarter: 2015Q1

REPORT INFORMATION
  Report Type: Spontaneous
  Country: GB (occurrence: None)
  Receive Date: 20141009
  Receipt Date: 20150127
  Transmission Date: 20150720
  Serious: Yes (Death, Hospitalization)
  Sender: FDA-Public Use
  Company Number: SP08368

PATIENT
  Age: 65 Year
  Sex: Male

DRUGS (2)
  1. CITALOPRAM [Concomitant]
     Active Substance: CITALOPRAM HYDROBROMIDE
  2. XIFAXAN [Suspect]
     Active Substance: RIFAXIMIN
     Indication: HEPATIC ENCEPHALOPATHY
     Dosage: (550 MG, 2 IN 1 D)
     Route: 048
     Dates: start: 20140602

REACTIONS (5)
  - Incorrect route of drug administration [None]
  - Hepatic encephalopathy [None]
  - Condition aggravated [None]
  - Disease progression [None]
  - Dysphagia [None]

NARRATIVE: CASE EVENT DATE: 2014
